FAERS Safety Report 9240373 (Version 3)
Quarter: 2013Q3

REPORT INFORMATION
  Report Type: Spontaneous
  Country: US (occurrence: None)
  Receive Date: 20130417
  Receipt Date: 20130929
  Transmission Date: 20140515
  Serious: Yes (Other)
  Sender: FDA-Public Use
  Company Number: JPI-P-031026

PATIENT
  Age: 35 Year
  Sex: Male
  Weight: 79.38 kg

DRUGS (3)
  1. XYREM (500 MILLIGRAM/ MILLILITERS, SOLUTION) (SODIUM OXYBATE) [Suspect]
     Indication: CATAPLEXY
     Route: 048
     Dates: start: 201302, end: 20130308
  2. LISDEXAMFETAMINE DIMESYLATE (UNKNOWN) [Concomitant]
  3. VENLAFAXINE HYDROCHLORIDE [Concomitant]

REACTIONS (3)
  - Mania [None]
  - Delusion [None]
  - Hallucination, visual [None]
